FAERS Safety Report 9179255 (Version 2)
Quarter: 2013Q2

REPORT INFORMATION
  Report Type: Spontaneous
  Country: FR (occurrence: FR)
  Receive Date: 20130321
  Receipt Date: 20130524
  Transmission Date: 20140414
  Serious: Yes (Other)
  Sender: FDA-Public Use
  Company Number: FR-GLAXOSMITHKLINE-B0875505A

PATIENT
  Age: 17 Year
  Sex: Male

DRUGS (2)
  1. SERETIDE [Suspect]
     Indication: ASTHMA
     Route: 055
  2. SINGULAIR [Concomitant]
     Indication: ASTHMA
     Dosage: 5MG PER DAY
     Route: 048
     Dates: end: 2011

REACTIONS (1)
  - Posterior capsule opacification [Unknown]
